FAERS Safety Report 19964048 (Version 1)
Quarter: 2021Q4

REPORT INFORMATION
  Report Type: Spontaneous
  Country: DE (occurrence: DE)
  Receive Date: 20211018
  Receipt Date: 20211018
  Transmission Date: 20220303
  Serious: Yes (Hospitalization)
  Sender: FDA-Public Use
  Company Number: DE-ADRED-06552-01

PATIENT
  Age: 83 Year
  Sex: Male
  Weight: 69.2 kg

DRUGS (11)
  1. XIPAMIDE [Suspect]
     Active Substance: XIPAMIDE
     Indication: Product used for unknown indication
     Dosage: 10 MILLIGRAM (1-0-0-0, TABLET)
     Route: 048
  2. SPIRONOLACTONE [Suspect]
     Active Substance: SPIRONOLACTONE
     Indication: Product used for unknown indication
     Dosage: 100 MILLIGRAM (1-0-0-0, TABLET)
     Route: 048
  3. TORSEMIDE [Suspect]
     Active Substance: TORSEMIDE
     Indication: Product used for unknown indication
     Dosage: 20 MILLIGRAM (1-0-0-0, TABLET)
     Route: 048
  4. APIXABAN [Suspect]
     Active Substance: APIXABAN
     Indication: Product used for unknown indication
     Dosage: 2.5 MILLIGRAM (1-0-1-0, TABLET)
     Route: 048
  5. ALLOPURINOL [Concomitant]
     Active Substance: ALLOPURINOL
     Dosage: 100 MILLIGRAM (1-0-0-0, TABLET)
     Route: 048
  6. METAMIZOLE [Concomitant]
     Active Substance: METAMIZOLE
     Dosage: 20 GTT DROPS (BEI BEDARF, TROPFEN)
     Route: 048
  7. SODIUM PICOSULFATE [Concomitant]
     Active Substance: SODIUM PICOSULFATE
     Dosage: 0-0-0-8, TROPFEN
     Route: 048
  8. TRICLOSAN [Concomitant]
     Active Substance: TRICLOSAN
     Dosage: 20|1 MG/G, 1-0-0-0, SALBE
     Route: 003
  9. PANTOPRAZOLE [Concomitant]
     Active Substance: PANTOPRAZOLE
     Dosage: 1-0-1-0, TABLETTEN
     Route: 048
  10. FLUMETASONE W/TRICLOSAN [Concomitant]
     Dosage: 0.2 MILLIGRAM (1-0-0-0, SALBE)
     Route: 003
  11. CLOTRIMAZOLE [Concomitant]
     Active Substance: CLOTRIMAZOLE
     Dosage: 10 MILLIGRAM (0-0-1-0, SALBE)
     Route: 003

REACTIONS (3)
  - Haemoptysis [Unknown]
  - Asthenia [Unknown]
  - General physical health deterioration [Unknown]
